FAERS Safety Report 25590542 (Version 2)
Quarter: 2025Q3

REPORT INFORMATION
  Report Type: Report from Study
  Country: US (occurrence: US)
  Receive Date: 20250722
  Receipt Date: 20250813
  Transmission Date: 20251021
  Serious: Yes (Other)
  Sender: ALEXION PHARMACEUTICALS
  Company Number: US-AstraZeneca-CH-00910512A

PATIENT
  Sex: Female

DRUGS (1)
  1. ULTOMIRIS [Suspect]
     Active Substance: RAVULIZUMAB-CWVZ
     Indication: Myasthenia gravis

REACTIONS (12)
  - Oedematous kidney [Unknown]
  - Myalgia [Unknown]
  - Muscle spasms [Unknown]
  - Blood pressure fluctuation [Unknown]
  - Abdominal distension [Unknown]
  - Dysarthria [Unknown]
  - Hyperhidrosis [Unknown]
  - Visual impairment [Recovering/Resolving]
  - Fatigue [Unknown]
  - Malaise [Unknown]
  - Temperature intolerance [Unknown]
  - Stress [Unknown]
